FAERS Safety Report 8422276-6 (Version None)
Quarter: 2012Q2

REPORT INFORMATION
  Report Type: 
  Country: None (occurrence: None)
  Receive Date: 20120608
  Receipt Date: 20120525
  Transmission Date: 20120825
  Serious: Yes (Hospitalization)
  Sender: FDA-Public Use
  Company Number: IT-TEVA-341614ISR

PATIENT
  Sex: Female

DRUGS (5)
  1. CARBOPLATIN [Suspect]
     Dosage: 50 MILLIGRAM;
     Route: 042
     Dates: start: 20120329, end: 20120329
  2. ALIMTA [Suspect]
     Route: 042
     Dates: start: 20120329, end: 20120329
  3. PREDNISONE TAB [Concomitant]
  4. DESAMETASONE [Concomitant]
     Dosage: 8 MILLIGRAM;
     Route: 042
     Dates: start: 20120329, end: 20120329
  5. CARBOPLATIN [Suspect]
     Indication: LUNG ADENOCARCINOMA METASTATIC
     Dosage: 150 MILLIGRAM;
     Route: 042
     Dates: start: 20120329, end: 20120329

REACTIONS (1)
  - PANCREATITIS [None]
